FAERS Safety Report 10601881 (Version 1)
Quarter: 2014Q4

REPORT INFORMATION
  Report Type: Spontaneous
  Country: DE (occurrence: DE)
  Receive Date: 20141124
  Receipt Date: 20141124
  Transmission Date: 20150529
  Serious: Yes (Hospitalization)
  Sender: FDA-Public Use
  Company Number: DE-BANPHARM-20143239

PATIENT
  Age: 29 Year
  Sex: Female

DRUGS (9)
  1. VENLAFAXINE [Concomitant]
     Active Substance: VENLAFAXINE HYDROCHLORIDE
     Dosage: 150 MG,
     Route: 048
     Dates: start: 2007, end: 20140424
  2. HYPNOREX [Suspect]
     Active Substance: LITHIUM CARBONATE
     Dosage: 800 MG,
     Route: 048
     Dates: start: 2010, end: 20140422
  3. AMLODIPINE [Concomitant]
     Active Substance: AMLODIPINE BESYLATE
     Indication: HYPERTENSION
     Dosage: 5 MG,
     Route: 048
  4. METFORMIN [Concomitant]
     Active Substance: METFORMIN HYDROCHLORIDE
     Indication: DIABETES MELLITUS
     Dosage: 1500 MG,
     Route: 048
     Dates: start: 2008, end: 20140422
  5. IBUPROFEN UNKNOWN PRODUCT [Suspect]
     Active Substance: IBUPROFEN
     Indication: PAIN
     Dosage: PRN,
     Route: 048
  6. ASPIRIN. [Concomitant]
     Active Substance: ASPIRIN
     Indication: PAIN
     Dosage: 100 MG,
     Route: 048
     Dates: start: 2008
  7. GLIMEPIRIDE. [Concomitant]
     Active Substance: GLIMEPIRIDE
     Indication: DIABETES MELLITUS
     Dosage: 1 MG,
     Route: 048
     Dates: start: 2008, end: 20140422
  8. L-THYROXIN [Concomitant]
     Active Substance: LEVOTHYROXINE SODIUM
     Indication: HYPOPARATHYROIDISM
     Dosage: 100 MCG,
     Route: 048
     Dates: start: 2008
  9. RAMIPRIL. [Concomitant]
     Active Substance: RAMIPRIL
     Indication: HYPERTENSION
     Dosage: 10 MG,
     Route: 048
     Dates: start: 2008

REACTIONS (6)
  - Ataxia [None]
  - Depressed mood [None]
  - Nausea [None]
  - Vomiting [None]
  - Toxicity to various agents [Recovered/Resolved]
  - Pain in extremity [None]

NARRATIVE: CASE EVENT DATE: 20140422
